FAERS Safety Report 5279224-X (Version None)
Quarter: 2007Q1

REPORT INFORMATION
  Report Type: 
  Country: None (occurrence: None)
  Receive Date: 20061213
  Receipt Date: 20060502
  Transmission Date: 20070707
  Serious: Yes (Hospitalization)
  Sender: FDA-Public Use
  Company Number: 2006UW08514

PATIENT
  Age: 32 Year
  Sex: Female
  Weight: 63.502 kg

DRUGS (4)
  1. SEROQUEL [Suspect]
     Indication: PERSONALITY DISORDER
     Dosage: 100 MG AND 200 MG
  2. SEROQUEL [Suspect]
     Indication: SOMNOLENCE
     Dosage: 100 MG AND 200 MG
  3. XANAX [Concomitant]
  4. AMBIEN [Concomitant]

REACTIONS (2)
  - HALLUCINATION, AUDITORY [None]
  - PSYCHOTIC DISORDER [None]
